FAERS Safety Report 6405174-9 (Version None)
Quarter: 2009Q4

REPORT INFORMATION
  Report Type: 
  Country: None (occurrence: None)
  Receive Date: 20091016
  Receipt Date: 20091016
  Transmission Date: 20100525
  Serious: Yes (Other)
  Sender: FDA-Public Use
  Company Number: None

PATIENT
  Age: 59 Year
  Sex: Male
  Weight: 104.3273 kg

DRUGS (2)
  1. FAMCICLOVIR [Suspect]
     Indication: HERPES ZOSTER
     Dosage: 500MG 1 PILL X 3 3X ORAL
     Route: 048
     Dates: start: 20090921
  2. FAMCICLOVIR [Suspect]
     Indication: HERPES ZOSTER
     Dosage: 500MG 1 PILL X 3 3X ORAL
     Route: 048
     Dates: start: 20090928

REACTIONS (2)
  - ABASIA [None]
  - RENAL PAIN [None]
